FAERS Safety Report 9471230 (Version 1)
Quarter: 2013Q3

REPORT INFORMATION
  Report Type: Spontaneous
  Country: US (occurrence: US)
  Receive Date: 20130822
  Receipt Date: 20130822
  Transmission Date: 20140515
  Serious: No
  Sender: FDA-Public Use
  Company Number: US-TARO-2013P1005292

PATIENT
  Age: 94 Year
  Sex: Female

DRUGS (6)
  1. TERBINAFINE HCL CREAM 1% (ATHLETES FOOT) [Suspect]
     Route: 061
     Dates: start: 20130412, end: 20130413
  2. BACTROBAN [Suspect]
  3. LIPITOR [Concomitant]
  4. CRESTOR [Concomitant]
  5. HIGH BLOOD PRESSURE MEDICINE [Concomitant]
  6. UNKNOWN PRODUCT FOR NEUROPATHY IN HER FEET [Concomitant]

REACTIONS (4)
  - Off label use [Unknown]
  - Application site rash [Recovering/Resolving]
  - Burns second degree [Recovering/Resolving]
  - Accidental exposure to product [Unknown]
